FAERS Safety Report 5253478-8 (Version None)
Quarter: 2007Q1

REPORT INFORMATION
  Report Type: 
  Country: None (occurrence: None)
  Receive Date: 20070301
  Receipt Date: 20070222
  Transmission Date: 20070707
  Serious: Yes (Other)
  Sender: FDA-Public Use
  Company Number: GB-BOEHRINGER INGELHEIM PHARMACEUTICALS, INC.-2007-BP-02818YA

PATIENT
  Age: 74 Year
  Sex: Male
  Weight: 80 kg

DRUGS (2)
  1. TAMSULOSIN HCL [Suspect]
     Indication: PROSTATISM
     Route: 048
     Dates: start: 20050101
  2. TROPICAMIDE [Suspect]
     Dates: start: 20070202, end: 20070202

REACTIONS (2)
  - ANGLE CLOSURE GLAUCOMA [None]
  - IRIS DISORDER [None]
